FAERS Safety Report 8680078 (Version 2)
Quarter: 2013Q1

REPORT INFORMATION
  Report Type: Spontaneous
  Country: US (occurrence: None)
  Receive Date: 20120706
  Receipt Date: 20130219
  Transmission Date: 20140127
  Serious: Yes (Hospitalization)
  Sender: FDA-Public Use
  Company Number: DSU-2012-05218

PATIENT
  Age: 81 Year
  Sex: Male

DRUGS (3)
  1. OLMESARTAN MEDOXOMIL [Suspect]
     Dosage: PER ORAL
     Route: 048
     Dates: end: 20101008
  2. METOPROLOL [Concomitant]
  3. ZOLPIDEM (ZOLPIDEM) [Concomitant]

REACTIONS (7)
  - WEIGHT DECREASED [None]
  - Diarrhoea [None]
  - Malabsorption [None]
  - Dehydration [None]
  - Pneumonia [None]
  - Deep vein thrombosis [None]
  - Intestinal villi atrophy [None]
